FAERS Safety Report 5190004-6 (Version None)
Quarter: 2006Q4

REPORT INFORMATION
  Report Type: 
  Country: None (occurrence: None)
  Receive Date: 20061221
  Receipt Date: 20060921
  Transmission Date: 20070319
  Serious: Yes (Other)
  Sender: FDA-Public Use
  Company Number: US-ELI_LILLY_AND_COMPANY-US200609006538

PATIENT
  Age: 61 Year
  Sex: Female
  Weight: 58.956 kg

DRUGS (9)
  1. CYMBALTA [Suspect]
     Indication: DEPRESSION
     Dosage: 60 MG, UNK
     Dates: start: 20060814, end: 20060911
  2. SIMVASTATIN [Concomitant]
  3. EZETIMIBE [Concomitant]
  4. TRAZODONE HCL [Concomitant]
     Dosage: 100 MG, UNK
  5. VIVELLE [Concomitant]
     Dosage: 0.25 MG, 2/W
     Dates: start: 20060301
  6. XANAX                                   /USA/ [Concomitant]
     Dosage: 2.5 MG, AS NEEDED
  7. ACTONEL                                 /USA/ [Concomitant]
     Dosage: 35 MG, WEEKLY (1/W)
  8. ASPIRIN [Concomitant]
  9. PAXIL [Concomitant]
     Dosage: 20 MG, DAILY (1/D)
     Dates: start: 20060918

REACTIONS (1)
  - HEPATITIS [None]
